FAERS Safety Report 8445563-4 (Version None)
Quarter: 2012Q2

REPORT INFORMATION
  Report Type: 
  Country: None (occurrence: None)
  Receive Date: 20120618
  Receipt Date: 20120611
  Transmission Date: 20120825
  Serious: Yes (Other)
  Sender: FDA-Public Use
  Company Number: US-CELGENEUS-163-21880-12051609

PATIENT
  Sex: Female

DRUGS (22)
  1. NEURONTIN [Concomitant]
     Route: 065
  2. SANDOSTATIN [Concomitant]
     Route: 065
  3. IBUPROFEN [Concomitant]
     Route: 065
  4. GLUCOSAMINE CHONDROITIN [Concomitant]
     Route: 048
  5. RESTASIS [Concomitant]
     Route: 065
  6. NAPROXEN (ALEVE) [Concomitant]
     Route: 065
  7. REVLIMID [Suspect]
     Dosage: 5 MILLIGRAM
     Route: 048
     Dates: start: 20110601
  8. REVLIMID [Suspect]
     Indication: MULTIPLE MYELOMA
     Dosage: 10 MILLIGRAM
     Route: 048
     Dates: start: 20101001
  9. ZYRTEC [Concomitant]
     Route: 065
  10. PRILOSEC [Concomitant]
     Route: 065
  11. ZETIA [Concomitant]
     Route: 065
  12. REVLIMID [Suspect]
     Dosage: 10 MILLIGRAM
     Route: 048
     Dates: start: 20111001
  13. ZOMETA [Concomitant]
     Route: 065
  14. ACYCLOVIR [Concomitant]
     Route: 065
  15. CHOLESTYRAM [Concomitant]
     Route: 065
  16. LEXAPRO [Concomitant]
     Route: 065
  17. LOMOTIL [Concomitant]
     Route: 065
  18. VITAMIN D [Concomitant]
     Route: 065
  19. ASPIRIN [Concomitant]
     Route: 065
  20. PRAVACHOL [Concomitant]
     Route: 065
  21. TRAZODONE HCL [Concomitant]
     Route: 065
  22. POTASSIUM ACETATE [Concomitant]
     Route: 065

REACTIONS (2)
  - BONE PAIN [None]
  - GLAUCOMA [None]
